FAERS Safety Report 7050478-2 (Version None)
Quarter: 2010Q4

REPORT INFORMATION
  Report Type: 
  Country: None (occurrence: None)
  Receive Date: 20101018
  Receipt Date: 20101015
  Transmission Date: 20110411
  Serious: Yes (Disabling)
  Sender: FDA-Public Use
  Company Number: TR-CEPHALON-2010005428

PATIENT
  Age: 32 Year
  Sex: Male

DRUGS (1)
  1. MODAFINIL [Suspect]
     Route: 048

REACTIONS (1)
  - OTITIS MEDIA ACUTE [None]
